FAERS Safety Report 25850517 (Version 1)
Quarter: 2025Q3

REPORT INFORMATION
  Report Type: Spontaneous
  Country: RU (occurrence: RU)
  Receive Date: 20250926
  Receipt Date: 20250926
  Transmission Date: 20251021
  Serious: Yes (Other)
  Sender: ORGANON
  Company Number: RU-ORGANON-O2509RUS002063

PATIENT
  Sex: Female

DRUGS (1)
  1. NUVARING [Suspect]
     Active Substance: ETHINYL ESTRADIOL\ETONOGESTREL
     Route: 067
     Dates: start: 2018

REACTIONS (3)
  - Unintended pregnancy [Unknown]
  - Pregnancy with contraceptive device [Unknown]
  - Incorrect product administration duration [Unknown]
